FAERS Safety Report 20973410 (Version 1)
Quarter: 2022Q2

REPORT INFORMATION
  Report Type: Spontaneous
  Country: US (occurrence: US)
  Receive Date: 20220617
  Receipt Date: 20220617
  Transmission Date: 20220720
  Serious: No
  Sender: FDA-Public Use
  Company Number: US-UROGEN PHARMA LTD.-2022-UGN-000043

PATIENT

DRUGS (3)
  1. JELMYTO [Suspect]
     Active Substance: MITOMYCIN
     Indication: Transitional cell cancer of the renal pelvis and ureter
     Dosage: 1 MG (MILLIGRAM), ONE TIMES PER WEEK (INSTILLATION)
     Dates: start: 20220322, end: 20220322
  2. JELMYTO [Suspect]
     Active Substance: MITOMYCIN
     Dosage: 1 MG (MILLIGRAM), ONE TIMES PER WEEK (INSTILLATION)
     Dates: start: 20220329, end: 20220329
  3. JELMYTO [Suspect]
     Active Substance: MITOMYCIN
     Dosage: 1 MG (MILLIGRAM), EVERY TWO WEEKS (INSTILLATION)
     Dates: start: 20220412, end: 20220412

REACTIONS (2)
  - Laboratory test abnormal [Unknown]
  - Infection [Unknown]

NARRATIVE: CASE EVENT DATE: 20220101
